FAERS Safety Report 7212807-6 (Version None)
Quarter: 2010Q4

REPORT INFORMATION
  Report Type: 
  Country: None (occurrence: None)
  Receive Date: 20101227
  Receipt Date: 20101208
  Transmission Date: 20110411
  Serious: Yes (Hospitalization)
  Sender: FDA-Public Use
  Company Number: DSA_44562_2010

PATIENT
  Sex: Male

DRUGS (1)
  1. BUPROPION HYDROCHLORIDE [Suspect]
     Indication: BIPOLAR DISORDER
     Dosage: (DF ORAL)
     Route: 048

REACTIONS (3)
  - RASH GENERALISED [None]
  - REACTION TO DRUG EXCIPIENTS [None]
  - URTICARIA [None]
